FAERS Safety Report 11396597 (Version 1)
Quarter: 2015Q3

REPORT INFORMATION
  Report Type: Report from Study
  Country: CN (occurrence: CN)
  Receive Date: 20150819
  Receipt Date: 20150819
  Transmission Date: 20151125
  Serious: Yes (Death, Life-Threatening, Other)
  Sender: FDA-Public Use
  Company Number: CN-BRISTOL-MYERS SQUIBB COMPANY-BMS-2015-050912

PATIENT
  Age: 43 Year
  Sex: Male
  Weight: 52 kg

DRUGS (6)
  1. IRINOTECAN [Suspect]
     Active Substance: IRINOTECAN
     Indication: COLORECTAL CANCER
     Dosage: `320 MG, QD
     Route: 065
     Dates: start: 20150306
  2. IRINOTECAN [Suspect]
     Active Substance: IRINOTECAN
     Dosage: UNK
     Route: 065
     Dates: start: 20150306
  3. CETUXIMAB [Suspect]
     Active Substance: CETUXIMAB
     Indication: COLORECTAL CANCER
     Dosage: 1 DF, Q2WK; 9 BOTTLES; 900 MG LAST DOSE
     Route: 065
     Dates: start: 20150306
  4. CETUXIMAB [Suspect]
     Active Substance: CETUXIMAB
     Dosage: 900 MG, Q2WK
     Route: 065
     Dates: start: 20150306
  5. XELODA [Concomitant]
     Active Substance: CAPECITABINE
     Indication: COLORECTAL CANCER
     Dosage: UNK MG, UNK
     Route: 048
     Dates: start: 201409
  6. CALCIUM FOLINATE [Concomitant]
     Active Substance: LEUCOVORIN CALCIUM
     Indication: COLORECTAL CANCER
     Route: 065

REACTIONS (4)
  - White blood cell count increased [Unknown]
  - Neoplasm progression [Fatal]
  - Bone marrow failure [Recovered/Resolved]
  - Gastrointestinal disorder [Recovered/Resolved]

NARRATIVE: CASE EVENT DATE: 20150714
